FAERS Safety Report 12217466 (Version 1)
Quarter: 2016Q1

REPORT INFORMATION
  Report Type: Spontaneous
  Country: US (occurrence: None)
  Receive Date: 20160328
  Receipt Date: 20160328
  Transmission Date: 20160526
  Serious: Yes (Life-Threatening, Hospitalization)
  Sender: FDA-Public Use
  Company Number: None

PATIENT
  Age: 36 Year
  Sex: Female
  Weight: 101.15 kg

DRUGS (1)
  1. XYREM [Suspect]
     Active Substance: SODIUM OXYBATE
     Indication: NARCOLEPSY
     Dosage: 4.5 G TWICE PER NIGHT ORAL
     Route: 048
     Dates: start: 20160224, end: 20160316

REACTIONS (4)
  - Feeling abnormal [None]
  - Anxiety [None]
  - Suicide attempt [None]
  - Fear [None]

NARRATIVE: CASE EVENT DATE: 20160319
